FAERS Safety Report 7355597-9 (Version None)
Quarter: 2011Q1

REPORT INFORMATION
  Report Type: 
  Country: None (occurrence: None)
  Receive Date: 20110316
  Receipt Date: 20110309
  Transmission Date: 20110831
  Serious: Yes (Other)
  Sender: FDA-Public Use
  Company Number: B0705489A

PATIENT
  Age: 67 Year
  Sex: Male

DRUGS (1)
  1. SULTANOL [Suspect]
     Route: 055
     Dates: start: 20100101

REACTIONS (3)
  - DENTAL NECROSIS [None]
  - GINGIVAL RECESSION [None]
  - GINGIVAL ERYTHEMA [None]
